FAERS Safety Report 13133250 (Version 1)
Quarter: 2017Q1

REPORT INFORMATION
  Report Type: Spontaneous
  Country: FR (occurrence: FR)
  Receive Date: 20170120
  Receipt Date: 20170120
  Transmission Date: 20170428
  Serious: Yes (Life-Threatening)
  Sender: FDA-Public Use
  Company Number: FR-JNJFOC-20170117236

PATIENT
  Age: 54 Year
  Sex: Male
  Weight: 73 kg

DRUGS (2)
  1. LOVENOX [Concomitant]
     Active Substance: ENOXAPARIN SODIUM
     Route: 065
     Dates: start: 20170103
  2. REOPRO [Suspect]
     Active Substance: ABCIXIMAB
     Indication: ACUTE CORONARY SYNDROME
     Route: 042
     Dates: start: 20170103, end: 20170103

REACTIONS (1)
  - Thrombocytopenia [Not Recovered/Not Resolved]

NARRATIVE: CASE EVENT DATE: 20170109
